FAERS Safety Report 8975627 (Version 1)
Quarter: 2012Q4

REPORT INFORMATION
  Report Type: 
  Country: DE (occurrence: DE)
  Receive Date: 20121219
  Receipt Date: 20121219
  Transmission Date: 20130627
  Serious: Yes (Other)
  Sender: FDA-Public Use
  Company Number: DE-PFIZER INC-2012315745

PATIENT
  Age: 63 Year
  Sex: Female

DRUGS (1)
  1. CELEBREX [Suspect]
     Indication: RHEUMATISM
     Dosage: UNK
     Route: 048
     Dates: start: 2004, end: 2004

REACTIONS (5)
  - Respiratory distress [Recovered/Resolved]
  - Gastric haemorrhage [Recovered/Resolved]
  - Dizziness [Recovered/Resolved]
  - Rash [Recovered/Resolved]
  - Abdominal pain upper [Recovered/Resolved]
